FAERS Safety Report 17953683 (Version 1)
Quarter: 2020Q2

REPORT INFORMATION
  Report Type: Spontaneous
  Country: US (occurrence: US)
  Receive Date: 20200628
  Receipt Date: 20200628
  Transmission Date: 20200714
  Serious: No
  Sender: FDA-Public Use
  Company Number: US-GALDERMA-US2020026663

PATIENT
  Sex: Female

DRUGS (1)
  1. DIFFERIN GEL [Suspect]
     Active Substance: ADAPALENE
     Dosage: 15 GRAM, 60-DAY SUPPLY (PACK OF 2)
     Route: 061

REACTIONS (3)
  - Skin exfoliation [Unknown]
  - Skin irritation [Unknown]
  - Dry skin [Unknown]
